FAERS Safety Report 7278472-7 (Version None)
Quarter: 2011Q1

REPORT INFORMATION
  Report Type: 
  Country: None (occurrence: None)
  Receive Date: 20110207
  Receipt Date: 20110128
  Transmission Date: 20110831
  Serious: Yes (Hospitalization, Other)
  Sender: FDA-Public Use
  Company Number: US-JNJFOC-20100806091

PATIENT
  Sex: Female

DRUGS (27)
  1. LYRICA [Concomitant]
     Indication: NEURALGIA
     Route: 065
  2. PREVACID [Concomitant]
     Indication: GASTROOESOPHAGEAL REFLUX DISEASE
     Route: 065
  3. IPRATROPIUM BROMIDE [Concomitant]
     Indication: WHEEZING
     Route: 065
  4. SERTRALINE HYDROCHLORIDE [Concomitant]
     Indication: DEPRESSION
     Route: 065
  5. INDOMETHACIN [Concomitant]
     Indication: ANTIINFLAMMATORY THERAPY
     Route: 065
  6. DICLOFENAC [Concomitant]
     Indication: ANTIINFLAMMATORY THERAPY
     Route: 065
  7. BENICAR [Concomitant]
     Indication: BLOOD PRESSURE
     Route: 065
  8. DUONEB [Concomitant]
     Indication: DYSPNOEA
     Route: 065
  9. AVELOX [Concomitant]
     Indication: DYSPNOEA
     Route: 065
  10. AVELOX [Concomitant]
     Indication: WHEEZING
     Route: 065
  11. ALBUTEROL [Concomitant]
     Indication: WHEEZING
     Route: 065
  12. PREVACID [Concomitant]
     Indication: ULCER
     Route: 065
  13. METHYLPREDNISOLONE [Suspect]
     Indication: RESPIRATORY DISORDER
     Route: 065
  14. AMITRIPTYLINE HCL [Concomitant]
     Indication: DEPRESSION
     Route: 065
  15. IBUPROFEN [Concomitant]
     Indication: ANTIINFLAMMATORY THERAPY
     Route: 065
  16. PROMETHAZINE [Concomitant]
     Indication: HYPERSENSITIVITY
     Route: 065
  17. DUONEB [Concomitant]
     Indication: WHEEZING
     Route: 065
  18. NAPROXEN [Concomitant]
     Indication: ANTIINFLAMMATORY THERAPY
     Route: 065
  19. ALBUTEROL [Concomitant]
     Indication: DYSPNOEA
     Route: 065
  20. IPRATROPIUM BROMIDE [Concomitant]
     Indication: DYSPNOEA
     Route: 065
  21. LEVAQUIN [Suspect]
     Indication: CYSTITIS
     Route: 048
  22. PREDNISONE [Suspect]
     Indication: RESPIRATORY DISORDER
     Route: 065
  23. LEVAQUIN [Suspect]
     Indication: ILL-DEFINED DISORDER
     Route: 048
  24. BUPROPION [Concomitant]
     Indication: DEPRESSION
     Route: 065
  25. VERAPAMIL [Concomitant]
     Indication: BLOOD PRESSURE
     Route: 065
  26. ALBUTEROL [Concomitant]
     Route: 065
  27. ALBUTEROL [Concomitant]
     Route: 065

REACTIONS (5)
  - TENDON INJURY [None]
  - ROTATOR CUFF SYNDROME [None]
  - TENDON RUPTURE [None]
  - DEPRESSION [None]
  - TENDONITIS [None]
